FAERS Safety Report 4622618-3 (Version None)
Quarter: 2005Q1

REPORT INFORMATION
  Report Type: 
  Country: None (occurrence: None)
  Receive Date: 20050330
  Receipt Date: 20050226
  Transmission Date: 20050727
  Serious: Yes (Life-Threatening, Hospitalization)
  Sender: FDA-Public Use
  Company Number: GB-GLAXOSMITHKLINE-B0373139A

PATIENT
  Age: 23 Year
  Sex: Male
  Weight: 60 kg

DRUGS (2)
  1. NYTOL [Suspect]
     Dosage: 80TAB PER DAY
     Route: 048
     Dates: start: 20050207, end: 20050207
  2. MIRTAZAPINE [Concomitant]
     Indication: DEPRESSION
     Route: 048

REACTIONS (2)
  - OVERDOSE [None]
  - RHABDOMYOLYSIS [None]
